FAERS Safety Report 15758355 (Version 2)
Quarter: 2018Q4

REPORT INFORMATION
  Report Type: Spontaneous
  Country: US (occurrence: US)
  Receive Date: 20181225
  Receipt Date: 20181231
  Transmission Date: 20190205
  Serious: No
  Sender: FDA-Public Use
  Company Number: US-JNJFOC-20181209938

PATIENT
  Age: 61 Year
  Sex: Female

DRUGS (2)
  1. WOMENS ROGAINE UNSCENTED [Suspect]
     Active Substance: MINOXIDIL
     Route: 061
  2. WOMENS ROGAINE UNSCENTED [Suspect]
     Active Substance: MINOXIDIL
     Indication: ALOPECIA
     Dosage: 1/2 A CAP FULL
     Route: 061
     Dates: start: 20181002, end: 20181207

REACTIONS (5)
  - Product formulation issue [Unknown]
  - Overdose [Unknown]
  - Head discomfort [Unknown]
  - Off label use [Unknown]
  - Skin burning sensation [Unknown]
